FAERS Safety Report 5131813-9 (Version None)
Quarter: 2006Q4

REPORT INFORMATION
  Report Type: 
  Country: None (occurrence: None)
  Receive Date: 20061016
  Receipt Date: 20061002
  Transmission Date: 20070319
  Serious: Yes (Death, Hospitalization)
  Sender: FDA-Public Use
  Company Number: 2006118580

PATIENT
  Age: 85 Year
  Sex: Male

DRUGS (1)
  1. SILDENAFIL CITRATE [Suspect]

REACTIONS (2)
  - ACUTE PULMONARY OEDEMA [None]
  - LEFT VENTRICULAR FAILURE [None]
